FAERS Safety Report 15241079 (Version 1)
Quarter: 2018Q3

REPORT INFORMATION
  Report Type: Spontaneous
  Country: US (occurrence: US)
  Receive Date: 20180711
  Receipt Date: 20180711
  Transmission Date: 20181010
  Serious: Yes (Hospitalization)
  Sender: FDA-Public Use
  Company Number: None

PATIENT
  Sex: Female
  Weight: 59.6 kg

DRUGS (1)
  1. GEMCITABINE HYDROCHLORIDE (613327) [Suspect]
     Active Substance: GEMCITABINE HYDROCHLORIDE
     Dates: end: 20180612

REACTIONS (3)
  - Diarrhoea [None]
  - Ascites [None]
  - Febrile neutropenia [None]

NARRATIVE: CASE EVENT DATE: 20180627
